FAERS Safety Report 11852116 (Version 2)
Quarter: 2015Q4

REPORT INFORMATION
  Report Type: Report from Study
  Country: CA (occurrence: CA)
  Receive Date: 20151218
  Receipt Date: 20151228
  Transmission Date: 20160305
  Serious: Yes (Death)
  Sender: FDA-Public Use
  Company Number: CA-FERRINGPH-2015FE04814

PATIENT

DRUGS (1)
  1. DEGARELIX [Suspect]
     Active Substance: DEGARELIX
     Indication: PROSTATE CANCER
     Dosage: UNK

REACTIONS (1)
  - Pneumonia [Fatal]
